FAERS Safety Report 5165302-2 (Version None)
Quarter: 2006Q4

REPORT INFORMATION
  Report Type: 
  Country: None (occurrence: None)
  Receive Date: 20061124
  Receipt Date: 20061115
  Transmission Date: 20070319
  Serious: Yes (Other)
  Sender: FDA-Public Use
  Company Number: 2006143040

PATIENT
  Age: 58 Year
  Sex: Male

DRUGS (1)
  1. SULFASALAZINE [Suspect]
     Indication: ANKYLOSING SPONDYLITIS
     Dosage: 1500 MG (500 MG, 3 IN 1 D)

REACTIONS (1)
  - VENTRICULAR EXTRASYSTOLES [None]
